FAERS Safety Report 9099169 (Version 1)
Quarter: 2013Q1

REPORT INFORMATION
  Report Type: Spontaneous
  Country: CA (occurrence: CA)
  Receive Date: 20130214
  Receipt Date: 20130214
  Transmission Date: 20140127
  Serious: Yes (Life-Threatening, Other)
  Sender: FDA-Public Use
  Company Number: CA-009507513-1302CAN006749

PATIENT
  Sex: Male

DRUGS (1)
  1. INVANZ [Suspect]
     Indication: GALLBLADDER ABSCESS
     Route: 065

REACTIONS (4)
  - Septic shock [Recovered/Resolved]
  - Drug ineffective [Unknown]
  - Treatment failure [Unknown]
  - Sepsis [Recovered/Resolved]
